FAERS Safety Report 21753939 (Version 2)
Quarter: 2023Q1

REPORT INFORMATION
  Report Type: Report from Study
  Country: US (occurrence: US)
  Receive Date: 20221220
  Receipt Date: 20230325
  Transmission Date: 20230418
  Serious: Yes (Congenital Anomaly)
  Sender: FDA-Public Use
  Company Number: US-ABBVIE-4203275

PATIENT
  Sex: Female

DRUGS (2)
  1. HUMIRA [Suspect]
     Active Substance: ADALIMUMAB
     Indication: Rheumatoid arthritis
     Route: 058
  2. HUMIRA [Suspect]
     Active Substance: ADALIMUMAB
     Indication: Rheumatoid arthritis
     Route: 058

REACTIONS (10)
  - Congenital anomaly [Not Recovered/Not Resolved]
  - Rheumatoid arthritis [Unknown]
  - Mobility decreased [Unknown]
  - Feeling abnormal [Unknown]
  - Stress [Unknown]
  - Myocardial bridging [Unknown]
  - Allergy to plants [Unknown]
  - Chest pain [Not Recovered/Not Resolved]
  - Adverse food reaction [Unknown]
  - Pain [Unknown]

NARRATIVE: CASE EVENT DATE: 20190101
